FAERS Safety Report 16863184 (Version 2)
Quarter: 2019Q4

REPORT INFORMATION
  Report Type: Spontaneous
  Country: US (occurrence: US)
  Receive Date: 20190927
  Receipt Date: 20191001
  Transmission Date: 20200122
  Serious: No
  Sender: FDA-Public Use
  Company Number: US-ELI_LILLY_AND_COMPANY-US201909011725

PATIENT
  Sex: Female

DRUGS (4)
  1. NOVOLOG [Concomitant]
     Active Substance: INSULIN ASPART
     Indication: TYPE 1 DIABETES MELLITUS
     Dosage: 17 U, PRN (12-17 UNITS ON SLIDING SCALE)
  2. BASAGLAR [Suspect]
     Active Substance: INSULIN GLARGINE
     Dosage: 76 U, EACH MORNING
     Route: 058
     Dates: start: 2013
  3. BASAGLAR [Suspect]
     Active Substance: INSULIN GLARGINE
     Dosage: 76 U, EACH MORNING
     Route: 058
  4. BASAGLAR [Suspect]
     Active Substance: INSULIN GLARGINE
     Indication: TYPE 1 DIABETES MELLITUS
     Dosage: 76 U, DAILY
     Route: 058

REACTIONS (4)
  - Blood glucose increased [Recovering/Resolving]
  - Blood glucose decreased [Recovered/Resolved]
  - Drug ineffective [Unknown]
  - Malaise [Unknown]

NARRATIVE: CASE EVENT DATE: 20190923
